FAERS Safety Report 4456149-0 (Version None)
Quarter: 2004Q3

REPORT INFORMATION
  Report Type: 
  Country: None (occurrence: None)
  Receive Date: 20040920
  Receipt Date: 20040907
  Transmission Date: 20050211
  Serious: Yes (Hospitalization)
  Sender: FDA-Public Use
  Company Number: 2004063493

PATIENT
  Age: 81 Year
  Sex: Female
  Weight: 70.7611 kg

DRUGS (2)
  1. MINIPRESS [Suspect]
     Indication: BLOOD PRESSURE
     Dosage: 2 MG (1 MG, 2 IN 1 D), ORAL
     Route: 048
  2. METOPROLOL TARTRATE [Concomitant]

REACTIONS (4)
  - FALL [None]
  - HYPERTENSION [None]
  - MUSCLE RUPTURE [None]
  - PHARMACEUTICAL PRODUCT COMPLAINT [None]
